FAERS Safety Report 13850267 (Version 2)
Quarter: 2017Q3

REPORT INFORMATION
  Report Type: Spontaneous
  Country: FR (occurrence: FR)
  Receive Date: 20170809
  Receipt Date: 20170811
  Transmission Date: 20171127
  Serious: Yes (Hospitalization, Other)
  Sender: FDA-Public Use
  Company Number: FR-PFIZER INC-2017335437

PATIENT
  Age: 84 Year
  Sex: Male

DRUGS (7)
  1. TRIATEC [Suspect]
     Active Substance: RAMIPRIL
     Indication: CHRONIC LYMPHOCYTIC LEUKAEMIA
     Dosage: 1.25 MG, 1X/DAY
     Route: 048
  2. XARELTO [Suspect]
     Active Substance: RIVAROXABAN
     Indication: ATRIAL FIBRILLATION
     Dosage: 15 MG, 1X/DAY
     Route: 048
  3. TRIATEC [Suspect]
     Active Substance: RAMIPRIL
     Dosage: 2 MG, DAILY
     Route: 048
     Dates: start: 20170626
  4. TAHOR [Suspect]
     Active Substance: ATORVASTATIN CALCIUM
     Dosage: 40 MG, 1X/DAY
     Route: 048
  5. CHLORAMINOPHENE [Suspect]
     Active Substance: CHLORAMBUCIL
     Dosage: 2 MG, 1X/DAY
     Route: 048
     Dates: start: 20170626, end: 20170713
  6. INEXIUM [Suspect]
     Active Substance: ESOMEPRAZOLE
     Dosage: 40 MG, 1X/DAY
     Route: 048
  7. CHLORAMINOPHENE [Suspect]
     Active Substance: CHLORAMBUCIL
     Indication: CHRONIC LYMPHOCYTIC LEUKAEMIA
     Dosage: 2 MG, 1X/DAY
     Route: 048
     Dates: start: 201412, end: 201604

REACTIONS (2)
  - Cardiac failure [Unknown]
  - Interstitial lung disease [Not Recovered/Not Resolved]

NARRATIVE: CASE EVENT DATE: 2015
